FAERS Safety Report 19244330 (Version 2)
Quarter: 2021Q2

REPORT INFORMATION
  Report Type: Spontaneous
  Country: AR (occurrence: AR)
  Receive Date: 20210511
  Receipt Date: 20210623
  Transmission Date: 20210717
  Serious: Yes (Hospitalization, Other)
  Sender: FDA-Public Use
  Company Number: AR-PFIZER INC-2021481258

PATIENT
  Age: 63 Year
  Sex: Male

DRUGS (1)
  1. SUTENT [Suspect]
     Active Substance: SUNITINIB MALATE
     Indication: METASTATIC RENAL CELL CARCINOMA
     Dosage: 50 MG, CYCLIC, UNSPECIFIED SCHEME
     Dates: start: 20170507, end: 202102

REACTIONS (7)
  - Gastrointestinal disorder [Unknown]
  - Anaemia [Unknown]
  - Hypersensitivity [Unknown]
  - Malaise [Unknown]
  - Gait inability [Unknown]
  - Skin exfoliation [Unknown]
  - Fistula [Unknown]

NARRATIVE: CASE EVENT DATE: 202012
